FAERS Safety Report 9021062 (Version 1)
Quarter: 2013Q1

REPORT INFORMATION
  Report Type: Spontaneous
  Country: US (occurrence: US)
  Receive Date: 20130119
  Receipt Date: 20130119
  Transmission Date: 20140127
  Serious: No
  Sender: FDA-Public Use
  Company Number: US-ALLERGAN-1204240US

PATIENT
  Age: 43 Year
  Sex: Female

DRUGS (6)
  1. BOTOX COSMETIC [Suspect]
     Indication: SKIN WRINKLING
     Dosage: 20 UNITS, SINGLE
     Route: 030
     Dates: start: 20111227, end: 20111227
  2. BOTOX COSMETIC [Suspect]
     Dosage: 15 UNITS, SINGLE
     Route: 030
     Dates: start: 20111227, end: 20111227
  3. BOTOX COSMETIC [Suspect]
     Dosage: 10 UNITS, SINGLE
     Route: 030
     Dates: start: 20111227, end: 20111227
  4. BOTOX COSMETIC [Suspect]
     Dosage: 5 UNITS, SINGLE
     Route: 030
     Dates: start: 20111227, end: 20111227
  5. BOTOX COSMETIC [Suspect]
     Dosage: UNK
     Dates: start: 20111003, end: 20111003
  6. BOTOX COSMETIC [Suspect]
     Dosage: UNK
     Dates: start: 20110519, end: 20110519

REACTIONS (1)
  - Drug ineffective [Unknown]
